FAERS Safety Report 9112732 (Version 1)
Quarter: 2013Q1

REPORT INFORMATION
  Report Type: Spontaneous
  Country: US (occurrence: US)
  Receive Date: 20130211
  Receipt Date: 20130211
  Transmission Date: 20140127
  Serious: Yes (Death, Other)
  Sender: FDA-Public Use
  Company Number: US-ELI_LILLY_AND_COMPANY-US201302001729

PATIENT
  Age: 15 Year
  Sex: Female

DRUGS (5)
  1. TADALAFIL [Suspect]
  2. AMLODIPINE [Concomitant]
  3. CLONAZEPAM [Concomitant]
  4. ACETAMINOPHEN W/DIPHENHYDRAMINE HYDROCHLORIDE [Concomitant]
  5. AZITHROMYCIN [Concomitant]

REACTIONS (1)
  - Completed suicide [Fatal]
